FAERS Safety Report 7138894-1 (Version None)
Quarter: 2010Q4

REPORT INFORMATION
  Report Type: 
  Country: None (occurrence: None)
  Receive Date: 20101206
  Receipt Date: 20091208
  Transmission Date: 20110411
  Serious: No
  Sender: FDA-Public Use
  Company Number: US-ABBOTT-09P-163-0613926-00

PATIENT

DRUGS (1)
  1. OMNICEF [Suspect]
     Dosage: 250 MG PER DAY.

REACTIONS (1)
  - FAECES DISCOLOURED [None]
